FAERS Safety Report 14371923 (Version 1)
Quarter: 2018Q1

REPORT INFORMATION
  Report Type: Spontaneous
  Country: US (occurrence: US)
  Receive Date: 20180110
  Receipt Date: 20180110
  Transmission Date: 20180509
  Serious: Yes (Other)
  Sender: FDA-Public Use
  Company Number: US-JNJFOC-20180108598

PATIENT
  Age: 33 Year
  Sex: Male
  Weight: 58.97 kg

DRUGS (4)
  1. NICOTINE. [Interacting]
     Active Substance: NICOTINE
     Indication: PRODUCT USED FOR UNKNOWN INDICATION
     Route: 065
  2. NICOTINE. [Interacting]
     Active Substance: NICOTINE
     Indication: PRODUCT USED FOR UNKNOWN INDICATION
     Route: 065
     Dates: start: 201801
  3. SIMPONI [Suspect]
     Active Substance: GOLIMUMAB
     Indication: COLITIS ULCERATIVE
     Route: 058
     Dates: start: 201502
  4. VITAMIN B12 [Concomitant]
     Active Substance: CYANOCOBALAMIN
     Indication: ENERGY INCREASED
     Route: 065

REACTIONS (9)
  - Haemorrhoids [Unknown]
  - Fatigue [Unknown]
  - Dizziness [Unknown]
  - Asthenia [Unknown]
  - Drug interaction [Unknown]
  - Paraesthesia [Unknown]
  - Hyperhidrosis [Unknown]
  - Hypoaesthesia [Unknown]
  - Frequent bowel movements [Unknown]

NARRATIVE: CASE EVENT DATE: 201801
